FAERS Safety Report 12131579 (Version 1)
Quarter: 2016Q1

REPORT INFORMATION
  Report Type: Spontaneous
  Country: US (occurrence: US)
  Receive Date: 20160301
  Receipt Date: 20160301
  Transmission Date: 20160526
  Serious: Yes (Hospitalization, Other)
  Sender: FDA-Public Use
  Company Number: US-AMGEN-USASP2016023928

PATIENT
  Age: 44 Year
  Sex: Male

DRUGS (5)
  1. NIFEDIPINE XL [Concomitant]
     Active Substance: NIFEDIPINE
  2. SENSIPAR [Suspect]
     Active Substance: CINACALCET HYDROCHLORIDE
     Indication: HYPERPARATHYROIDISM SECONDARY
     Dosage: 60 MG, QD
     Route: 065
     Dates: start: 2013
  3. PARICALCITOL. [Concomitant]
     Active Substance: PARICALCITOL
     Indication: HYPERPARATHYROIDISM SECONDARY
  4. METOPROLOL SUCCINATE. [Concomitant]
     Active Substance: METOPROLOL SUCCINATE
  5. SEVELAMER CARBONATE. [Concomitant]
     Active Substance: SEVELAMER CARBONATE

REACTIONS (3)
  - Hypocalcaemia [Unknown]
  - Torsade de pointes [Recovered/Resolved]
  - Cardiac arrest [Recovered/Resolved]
